FAERS Safety Report 19402478 (Version 6)
Quarter: 2021Q4

REPORT INFORMATION
  Report Type: Spontaneous
  Country: LT (occurrence: LT)
  Receive Date: 20210610
  Receipt Date: 20211018
  Transmission Date: 20220303
  Serious: Yes (Hospitalization, Other)
  Sender: FDA-Public Use
  Company Number: NVSC2021LT129156

PATIENT
  Age: 21 Year
  Sex: Male

DRUGS (42)
  1. TRIHEXYPHENIDYL [Suspect]
     Active Substance: TRIHEXYPHENIDYL
     Indication: Psychotic symptom
     Dosage: 4 MG, QD
     Route: 065
  2. TRIHEXYPHENIDYL [Suspect]
     Active Substance: TRIHEXYPHENIDYL
     Indication: Extrapyramidal disorder
     Dosage: 6 MG, QD
     Route: 048
  3. TRIHEXYPHENIDYL [Suspect]
     Active Substance: TRIHEXYPHENIDYL
     Indication: Psychomotor hyperactivity
     Dosage: 8 MG, QD
     Route: 065
  4. TRIHEXYPHENIDYL [Suspect]
     Active Substance: TRIHEXYPHENIDYL
     Indication: Aggression
     Dosage: 4 MG, QD
     Route: 065
  5. TRIHEXYPHENIDYL [Suspect]
     Active Substance: TRIHEXYPHENIDYL
     Indication: Persecutory delusion
  6. CARBAMAZEPINE [Suspect]
     Active Substance: CARBAMAZEPINE
     Indication: Psychotic symptom
     Dosage: 300 MG, QD
     Route: 048
  7. CARBAMAZEPINE [Suspect]
     Active Substance: CARBAMAZEPINE
     Indication: Persecutory delusion
     Dosage: 600 MG, QD
     Route: 048
  8. CARBAMAZEPINE [Suspect]
     Active Substance: CARBAMAZEPINE
     Indication: Abnormal behaviour
     Dosage: 900 MG, QD
     Route: 048
  9. CARBAMAZEPINE [Suspect]
     Active Substance: CARBAMAZEPINE
     Indication: Psychotic disorder
     Dosage: UNK
     Route: 065
  10. DIAZEPAM [Suspect]
     Active Substance: DIAZEPAM
     Indication: Psychotic symptom
     Dosage: 15 MG, QD,1ST TO 32TH DAY
     Route: 048
  11. DIAZEPAM [Suspect]
     Active Substance: DIAZEPAM
     Indication: Psychomotor hyperactivity
     Dosage: 15 MG, QD,36TH TO 42TH DAY
     Route: 048
  12. DIAZEPAM [Suspect]
     Active Substance: DIAZEPAM
     Indication: Persecutory delusion
  13. DIAZEPAM [Suspect]
     Active Substance: DIAZEPAM
     Indication: Aggression
  14. OLANZAPINE [Suspect]
     Active Substance: OLANZAPINE
     Indication: Psychotic symptom
     Dosage: 20 MG, QD
     Route: 065
  15. OLANZAPINE [Suspect]
     Active Substance: OLANZAPINE
     Indication: Behaviour disorder
     Dosage: 15 MG, QD
     Route: 048
  16. OLANZAPINE [Suspect]
     Active Substance: OLANZAPINE
     Indication: Delusion
     Dosage: UNK
     Route: 065
  17. OLANZAPINE [Suspect]
     Active Substance: OLANZAPINE
     Indication: Abnormal behaviour
  18. OLANZAPINE [Suspect]
     Active Substance: OLANZAPINE
     Indication: Persecutory delusion
  19. HALOPERIDOL [Suspect]
     Active Substance: HALOPERIDOL
     Indication: Psychotic symptom
     Dosage: 20 MG, QD
     Route: 065
  20. HALOPERIDOL [Suspect]
     Active Substance: HALOPERIDOL
     Indication: Psychomotor hyperactivity
     Dosage: 1ST DAY TO 23TH DAY
     Route: 065
  21. HALOPERIDOL [Suspect]
     Active Substance: HALOPERIDOL
     Indication: Persecutory delusion
     Dosage: UNK
     Route: 065
  22. HALOPERIDOL [Suspect]
     Active Substance: HALOPERIDOL
     Indication: Aggression
  23. AMOXICILLIN [Concomitant]
     Active Substance: AMOXICILLIN
     Indication: Antibiotic therapy
     Dosage: 1500 MG, QD, 14TH TO 20TH DAY
     Route: 048
  24. AMOXICILLIN [Concomitant]
     Active Substance: AMOXICILLIN
     Indication: Inflammatory marker increased
  25. AMOXICILLIN [Concomitant]
     Active Substance: AMOXICILLIN
     Indication: Oropharyngeal pain
  26. AMOXICILLIN [Concomitant]
     Active Substance: AMOXICILLIN
     Indication: Oral mucosal eruption
  27. CLEMASTINE [Concomitant]
     Active Substance: CLEMASTINE
     Indication: Viral infection
     Dosage: 2 MILLIGRAM, QD
     Route: 048
  28. CEFUROXIME [Concomitant]
     Active Substance: CEFUROXIME
     Indication: Sinusitis
     Dosage: 4.5 G, QD,22ND DAY TO 39TH DAY
     Route: 042
  29. CEFUROXIME [Concomitant]
     Active Substance: CEFUROXIME
     Indication: Inflammatory marker increased
  30. ANTIHEMOPHILIC FACTOR HUMAN [Concomitant]
     Active Substance: ANTIHEMOPHILIC FACTOR HUMAN
     Indication: Haemophilia
     Dosage: 1000 IU,28TH DAY
     Route: 042
  31. ANTIHEMOPHILIC FACTOR HUMAN [Concomitant]
     Active Substance: ANTIHEMOPHILIC FACTOR HUMAN
     Indication: Prophylaxis
  32. CIPROFLOXACIN [Concomitant]
     Active Substance: CIPROFLOXACIN
     Indication: Rash
     Dosage: 400 MG, QD
     Route: 048
  33. CIPROFLOXACIN [Concomitant]
     Active Substance: CIPROFLOXACIN
     Indication: Inflammatory marker increased
     Dosage: 800 MG, QD
     Route: 042
  34. CIPROFLOXACIN [Concomitant]
     Active Substance: CIPROFLOXACIN
     Dosage: 400 MG
     Route: 042
  35. IBUPROFEN [Concomitant]
     Active Substance: IBUPROFEN
     Indication: Pyrexia
     Dosage: 400 MG, QD
     Route: 042
  36. IBUPROFEN [Concomitant]
     Active Substance: IBUPROFEN
     Dosage: 400 MG, QD
     Route: 048
  37. LORATADINE [Concomitant]
     Active Substance: LORATADINE
     Indication: Dermatitis allergic
     Dosage: 10 MG/D (31TH DAY-32ND DAY)
     Route: 065
  38. LORATADINE [Concomitant]
     Active Substance: LORATADINE
     Indication: Rash
     Dosage: 20 MG, QD, 32ND DAY TO 39TH DAY
     Route: 048
  39. DEXAMETHASONE [Concomitant]
     Active Substance: DEXAMETHASONE
     Indication: Dermatitis allergic
     Dosage: 12 MG, QD
     Route: 042
  40. DEXAMETHASONE [Concomitant]
     Active Substance: DEXAMETHASONE
     Indication: Rash
  41. QUETIAPINE [Concomitant]
     Active Substance: QUETIAPINE
     Indication: Psychotic symptom
     Dosage: 300 MG, QD
     Route: 048
  42. QUETIAPINE [Concomitant]
     Active Substance: QUETIAPINE
     Dosage: 500 MG, QD
     Route: 048

REACTIONS (3)
  - Drug reaction with eosinophilia and systemic symptoms [Recovered/Resolved]
  - Drug ineffective [Unknown]
  - Product use in unapproved indication [Unknown]
